FAERS Safety Report 8863836 (Version 1)
Quarter: 2012Q4

REPORT INFORMATION
  Report Type: 
  Country: US (occurrence: US)
  Receive Date: 20121024
  Receipt Date: 20121024
  Transmission Date: 20130627
  Serious: No
  Sender: FDA-Public Use
  Company Number: US-AMGEN-USASP2011064139

PATIENT
  Age: 59 Year
  Sex: Female
  Weight: 100.68 kg

DRUGS (8)
  1. ENBREL [Suspect]
     Indication: PRODUCT USED FOR UNKNOWN INDICATION
     Dosage: 50 mg, UNK
  2. VITAMIN D3 [Concomitant]
     Dosage: 1000 IU, UNK
  3. MAGNESIUM [Concomitant]
     Dosage: 300 mg, UNK
  4. ZOLOFT [Concomitant]
     Dosage: 25 mg, UNK
  5. VITAMIN C                          /00008001/ [Concomitant]
     Dosage: 500 mg, UNK
  6. VITAMIN B12                        /00056201/ [Concomitant]
  7. OMEPRAZOLE [Concomitant]
     Dosage: 10 mg, UNK
  8. PREDNISONE [Concomitant]
     Dosage: 5 mg, UNK

REACTIONS (2)
  - Bladder operation [Unknown]
  - Pain in extremity [Unknown]
